FAERS Safety Report 5799612-2 (Version None)
Quarter: 2008Q3

REPORT INFORMATION
  Report Type: 
  Country: None (occurrence: None)
  Receive Date: 20080703
  Receipt Date: 20080630
  Transmission Date: 20090109
  Serious: Yes (Disabling)
  Sender: FDA-Public Use
  Company Number: PHEH2008US05110

PATIENT
  Sex: Male

DRUGS (1)
  1. FORADIL [Suspect]
     Dosage: UNK
     Dates: start: 20070101

REACTIONS (4)
  - DEVICE MALFUNCTION [None]
  - INTERVERTEBRAL DISC PROTRUSION [None]
  - SPINAL FUSION SURGERY [None]
  - SURGERY [None]
